FAERS Safety Report 9262756 (Version 1)
Quarter: 2013Q2

REPORT INFORMATION
  Report Type: Spontaneous
  Country: IT (occurrence: None)
  Receive Date: 20130426
  Receipt Date: 20130426
  Transmission Date: 20140414
  Serious: Yes (Hospitalization)
  Sender: FDA-Public Use
  Company Number: GER/ITL/13/0029139

PATIENT
  Age: 15 Year
  Sex: Male

DRUGS (6)
  1. RAMIPRIL [Suspect]
     Indication: PRODUCT USED FOR UNKNOWN INDICATION
     Dosage: 7 DOSAGE FORMS, 1 IN 1 TOTAL
     Route: 048
     Dates: start: 20130218, end: 20130218
  2. ZITROMAX [Suspect]
     Indication: PRODUCT USED FOR UNKNOWN INDICATION
     Dosage: 1 IN 1 D
     Route: 048
     Dates: start: 20130218, end: 20130218
  3. PURSENNID [Suspect]
     Indication: PRODUCT USED FOR UNKNOWN INDICATION
     Dosage: 1 IN 1 TOTAL
     Dates: start: 20130218, end: 20130218
  4. PARACETAMOL (PARACETAMOL) [Suspect]
     Indication: PRODUCT USED FOR UNKNOWN INDICATION
     Dosage: 1 IN 1 TOTAL
     Route: 048
     Dates: start: 20130218, end: 20130218
  5. ALMOTRIPTAN MALATE [Suspect]
     Indication: PRODUCT USED FOR UNKNOWN INDICATION
     Dosage: 1 IN 1 TOTAL
     Route: 048
     Dates: start: 20130218, end: 20130218
  6. LEVOCETIRIZINE [Suspect]
     Indication: PRODUCT USED FOR UNKNOWN INDICATION
     Dosage: 1 IN 1 TOTAL
     Route: 048
     Dates: start: 20130218, end: 20130218

REACTIONS (4)
  - Confusional state [None]
  - Somnolence [None]
  - Drug abuse [None]
  - Intentional self-injury [None]
